FAERS Safety Report 19776769 (Version 1)
Quarter: 2021Q3

REPORT INFORMATION
  Report Type: Spontaneous
  Country: US (occurrence: US)
  Receive Date: 20210901
  Receipt Date: 20210901
  Transmission Date: 20211014
  Serious: No
  Sender: FDA-Public Use
  Company Number: US-TEVA-2021-US-1946853

PATIENT
  Age: 66 Year
  Sex: Female
  Weight: 83.91 kg

DRUGS (12)
  1. AUSTEDO [Suspect]
     Active Substance: DEUTETRABENAZINE
     Indication: TARDIVE DYSKINESIA
     Dosage: 12 MILLIGRAM DAILY; TITRATED HER DOSE FROM 6MG TWICE DAILY TO 9MG TWICE DAILY
     Route: 065
     Dates: start: 20210620
  2. LAMOTRIGINE. [Concomitant]
     Active Substance: LAMOTRIGINE
  3. LEVOTHYROXINE. [Concomitant]
     Active Substance: LEVOTHYROXINE
  4. FISH OIL [Concomitant]
     Active Substance: FISH OIL
  5. ROSUVASTATIN. [Concomitant]
     Active Substance: ROSUVASTATIN
  6. VITAMIN B12 [Concomitant]
     Active Substance: CYANOCOBALAMIN
  7. HYDROXYCHLOROQUINE [Concomitant]
     Active Substance: HYDROXYCHLOROQUINE
  8. PROLIA [Concomitant]
     Active Substance: DENOSUMAB
     Dosage: TWICE A YEAR
  9. VITAMIN B12 [Concomitant]
     Active Substance: CYANOCOBALAMIN
     Route: 048
  10. SERTRALINE [Concomitant]
     Active Substance: SERTRALINE HYDROCHLORIDE
  11. AUSTEDO [Suspect]
     Active Substance: DEUTETRABENAZINE
     Dosage: 18 MILLIGRAM DAILY; TITRATED HER DOSE TO 18MG TWICE DAILY
     Route: 065
     Dates: start: 2021
  12. CITRACAL [Concomitant]
     Active Substance: CALCIUM CITRATE
     Dosage: 2 TABLETS IN THE MORNING, 2 TABLETS IN THE EVENING; 2000MG OF VITAMIN D/DAY AND 1200MG CALCIUM/DAY

REACTIONS (1)
  - Drug ineffective [Unknown]

NARRATIVE: CASE EVENT DATE: 2021
